FAERS Safety Report 9288544 (Version 1)
Quarter: 2013Q2

REPORT INFORMATION
  Report Type: Spontaneous
  Country: US (occurrence: None)
  Receive Date: 20130513
  Receipt Date: 20130513
  Transmission Date: 20140414
  Serious: Yes (Hospitalization)
  Sender: FDA-Public Use
  Company Number: None

PATIENT
  Sex: Male

DRUGS (1)
  1. XELODA [Suspect]
     Indication: HEPATOBILIARY CANCER
     Dosage: BID X 14 DAYS, OFF 7 DAYS
     Dates: start: 20130322

REACTIONS (1)
  - Pulmonary oedema [None]
